FAERS Safety Report 5118951-1 (Version None)
Quarter: 2006Q3

REPORT INFORMATION
  Report Type: 
  Country: None (occurrence: None)
  Receive Date: 20060926
  Receipt Date: 20060912
  Transmission Date: 20061208
  Serious: Yes (Other)
  Sender: FDA-Public Use
  Company Number: 2006BH013353

PATIENT
  Age: 52 Year
  Sex: Male
  Weight: 123.63 kg

DRUGS (4)
  1. ARALAST [Suspect]
     Indication: ALPHA-1 ANTI-TRYPSIN DEFICIENCY
     Dosage: 6.0 MG/KG; EVERY WEEK; IV
     Route: 042
     Dates: start: 20060816
  2. ARALAST [Suspect]
     Indication: ALPHA-1 ANTI-TRYPSIN DEFICIENCY
     Dosage: 6.0 MG/KG; EVERY WEEK; IV
     Route: 042
     Dates: start: 20060821
  3. ARALAST [Suspect]
     Indication: ALPHA-1 ANTI-TRYPSIN DEFICIENCY
     Dosage: 6.0 MG/KG; EVERY WEEK; IV
     Route: 042
     Dates: start: 20060831
  4. ARALAST [Suspect]

REACTIONS (3)
  - BLOOD PRESSURE INCREASED [None]
  - HEADACHE [None]
  - HYPERHIDROSIS [None]
